FAERS Safety Report 10197224 (Version 1)
Quarter: 2014Q2

REPORT INFORMATION
  Report Type: Spontaneous
  Country: US (occurrence: US)
  Receive Date: 20140527
  Receipt Date: 20140527
  Transmission Date: 20141212
  Serious: Yes (Other)
  Sender: FDA-Public Use
  Company Number: US-GLAXOSMITHKLINE-A1074435A

PATIENT
  Age: 61 Year
  Sex: Male

DRUGS (1)
  1. ADVAIR [Suspect]
     Indication: DYSPNOEA
     Route: 065
     Dates: start: 20110520

REACTIONS (2)
  - Oxygen supplementation [Unknown]
  - Activities of daily living impaired [Unknown]
